FAERS Safety Report 7511532-1 (Version None)
Quarter: 2011Q2

REPORT INFORMATION
  Report Type: 
  Country: None (occurrence: None)
  Receive Date: 20110519
  Receipt Date: 20110509
  Transmission Date: 20111010
  Serious: Yes (Other)
  Sender: FDA-Public Use
  Company Number: 2011MA005863

PATIENT
  Age: 48 Year
  Sex: Female

DRUGS (3)
  1. ACETAMINOPHEN [Concomitant]
  2. IBUPROFEN [Concomitant]
  3. LAMOTRIGINE [Suspect]
     Indication: DEPRESSION
     Dosage: 100 MG QD, PO
     Route: 048
     Dates: start: 20100710, end: 20101028

REACTIONS (7)
  - MUSCLE TIGHTNESS [None]
  - INSOMNIA [None]
  - VITAMIN D DEFICIENCY [None]
  - DYSSTASIA [None]
  - GAIT DISTURBANCE [None]
  - FATIGUE [None]
  - MYALGIA [None]
